APPROVED DRUG PRODUCT: AMLODIPINE AND OLMESARTAN MEDOXOMIL
Active Ingredient: AMLODIPINE BESYLATE; OLMESARTAN MEDOXOMIL
Strength: EQ 10MG BASE;40MG
Dosage Form/Route: TABLET;ORAL
Application: A206906 | Product #004 | TE Code: AB
Applicant: AUROBINDO PHARMA LTD
Approved: May 15, 2017 | RLD: No | RS: No | Type: RX